FAERS Safety Report 18292233 (Version 1)
Quarter: 2020Q3

REPORT INFORMATION
  Report Type: Spontaneous
  Country: US (occurrence: US)
  Receive Date: 20200922
  Receipt Date: 20200922
  Transmission Date: 20201103
  Serious: Yes (Death)
  Sender: FDA-Public Use
  Company Number: US-CELLTRION INC.-2020US026771

PATIENT

DRUGS (11)
  1. RITUXIMAB (UNKNOWN) [Suspect]
     Active Substance: RITUXIMAB
     Dosage: 375 MG/M2; FOUR DOSES OF WEEKLY RTX
     Route: 042
  2. METHOTREXATE. [Suspect]
     Active Substance: METHOTREXATE
     Dosage: 0.4 MG/KG; THREE DOSES PER CYCLE WITH FIRST THREE ERT INFUSIONS
     Route: 065
  3. RITUXIMAB (UNKNOWN) [Suspect]
     Active Substance: RITUXIMAB
     Dosage: 375 MG/M2; FOUR DOSES OF WEEKLY RTX
     Route: 042
  4. METHOTREXATE. [Suspect]
     Active Substance: METHOTREXATE
     Dosage: 0.4 MG/KG; THREE DOSES PER CYCLE WITH FIRST THREE ERT INFUSIONS
     Route: 065
  5. METHOTREXATE. [Suspect]
     Active Substance: METHOTREXATE
     Dosage: TWO DOSES OF MTX WITH 3RD ERT INFUSION
  6. ALGLUCOSIDASE ALFA RECOMBINANT [Suspect]
     Active Substance: ALGLUCOSIDASE ALFA
     Indication: GLYCOGEN STORAGE DISEASE TYPE II
     Dosage: 20 MG/KG EVERY OTHER WEEK (EOW)
  7. RITUXIMAB (UNKNOWN) [Suspect]
     Active Substance: RITUXIMAB
     Indication: GLYCOGEN STORAGE DISEASE TYPE II
     Dosage: 375 MG/M2; FOUR DOSES OF WEEKLY RTX
     Route: 042
  8. METHOTREXATE. [Suspect]
     Active Substance: METHOTREXATE
     Indication: GLYCOGEN STORAGE DISEASE TYPE II
     Dosage: 0.4 MG/KG; THREE DOSES PER CYCLE WITH FIRST THREE ERT INFUSIONS
     Route: 065
  9. RITUXIMAB (UNKNOWN) [Suspect]
     Active Substance: RITUXIMAB
     Dosage: 375 MG/M2; FOUR DOSES OF WEEKLY RTX
     Route: 042
  10. METHOTREXATE. [Suspect]
     Active Substance: METHOTREXATE
     Dosage: TWO DOSES OF MTX WITH 3RD ERT INFUSION
  11. METHOTREXATE. [Suspect]
     Active Substance: METHOTREXATE
     Dosage: ADDITIONAL CYCLES OF MTX ADMINISTERED WITH 4TH, 5TH, AND 6TH ERT INFUSIONS

REACTIONS (5)
  - Off label use [Unknown]
  - Glycogen storage disease type II [Fatal]
  - Product use issue [Unknown]
  - Drug effective for unapproved indication [Unknown]
  - Disease progression [Fatal]
